FAERS Safety Report 5451842-5 (Version None)
Quarter: 2007Q3

REPORT INFORMATION
  Report Type: 
  Country: None (occurrence: None)
  Receive Date: 20070806
  Receipt Date: 20070501
  Transmission Date: 20080115
  Serious: Yes (Other)
  Sender: FDA-Public Use
  Company Number: 36611

PATIENT
  Age: 33 Year
  Sex: Female
  Weight: 84.8226 kg

DRUGS (1)
  1. MIDAZOLAM HCL [Suspect]
     Indication: ENDOSCOPY
     Dosage: 0.5-2.5 MG IV
     Dates: start: 20070425

REACTIONS (1)
  - DRUG INEFFECTIVE [None]
